FAERS Safety Report 6228104-1 (Version None)
Quarter: 2009Q2

REPORT INFORMATION
  Report Type: 
  Country: None (occurrence: None)
  Receive Date: 20090612
  Receipt Date: 20090604
  Transmission Date: 20091009
  Serious: Yes (Other)
  Sender: FDA-Public Use
  Company Number: JP-ABBOTT-09P-087-0574832-00

PATIENT
  Age: 75 Year
  Sex: Female
  Weight: 33.8 kg

DRUGS (3)
  1. CLARITHROMYCIN [Suspect]
     Indication: DRUG USE FOR UNKNOWN INDICATION
     Route: 048
  2. ITRACONAZOLE [Interacting]
     Indication: BRONCHIAL SECRETION RETENTION
     Dates: start: 20070601, end: 20071001
  3. ITRACONAZOLE [Interacting]
     Dates: start: 20080201

REACTIONS (2)
  - CARDIAC FAILURE [None]
  - DRUG INTERACTION [None]
